FAERS Safety Report 13578897 (Version 1)
Quarter: 2017Q2

REPORT INFORMATION
  Report Type: Spontaneous
  Country: US (occurrence: US)
  Receive Date: 20170524
  Receipt Date: 20170524
  Transmission Date: 20170830
  Serious: No
  Sender: FDA-Public Use
  Company Number: US-JAZZ-2017-US-005028

PATIENT
  Age: 45 Year
  Sex: Female
  Weight: 61.22 kg

DRUGS (9)
  1. XYREM [Suspect]
     Active Substance: SODIUM OXYBATE
     Indication: INSOMNIA
     Dosage: DOSE ADJUSTMENT
     Route: 048
     Dates: start: 201612, end: 2017
  2. GABAPENTIN. [Concomitant]
     Active Substance: GABAPENTIN
  3. XYREM [Suspect]
     Active Substance: SODIUM OXYBATE
     Indication: NARCOLEPSY
     Dosage: 2.25G, BID
     Route: 048
     Dates: start: 201610, end: 201612
  4. BACLOFEN. [Concomitant]
     Active Substance: BACLOFEN
  5. CLONAZEPAM. [Concomitant]
     Active Substance: CLONAZEPAM
  6. XYREM [Suspect]
     Active Substance: SODIUM OXYBATE
     Dosage: 4.5 G, BID
     Route: 048
     Dates: start: 201703
  7. XYREM [Suspect]
     Active Substance: SODIUM OXYBATE
     Dosage: 2.25 G, QD
     Route: 048
     Dates: start: 2017, end: 2017
  8. XYREM [Suspect]
     Active Substance: SODIUM OXYBATE
     Dosage: 2.25 G, BID
     Route: 048
     Dates: start: 201704
  9. KLONOPIN [Concomitant]
     Active Substance: CLONAZEPAM

REACTIONS (7)
  - Palpitations [Unknown]
  - Eye swelling [Not Recovered/Not Resolved]
  - Eye disorder [Not Recovered/Not Resolved]
  - Increased tendency to bruise [Not Recovered/Not Resolved]
  - Laryngospasm [Unknown]
  - Hypotension [Unknown]
  - Dysphagia [Recovered/Resolved]

NARRATIVE: CASE EVENT DATE: 20170423
